FAERS Safety Report 21296411 (Version 1)
Quarter: 2022Q3

REPORT INFORMATION
  Report Type: Spontaneous
  Country: US (occurrence: US)
  Receive Date: 20220906
  Receipt Date: 20220906
  Transmission Date: 20221026
  Serious: No
  Sender: FDA-Public Use
  Company Number: US-009507513-2208USA007510

PATIENT
  Sex: Male

DRUGS (1)
  1. BELSOMRA [Suspect]
     Active Substance: SUVOREXANT
     Indication: Sleep disorder therapy
     Dosage: 20 MG TABLET: TAKE ONE TABLET NIGHTLY
     Route: 048
     Dates: start: 2020

REACTIONS (8)
  - Irritability [Unknown]
  - Mood swings [Unknown]
  - Anger [Unknown]
  - Blood pressure increased [Unknown]
  - Insomnia [Unknown]
  - Drug ineffective [Unknown]
  - Product dose omission issue [Unknown]
  - Inability to afford medication [Unknown]
